FAERS Safety Report 25063884 (Version 1)
Quarter: 2025Q1

REPORT INFORMATION
  Report Type: Report from Study
  Country: US (occurrence: US)
  Receive Date: 20250311
  Receipt Date: 20250311
  Transmission Date: 20250409
  Serious: Yes (Other)
  Sender: ABBVIE
  Company Number: US-ABBVIE-6165877

PATIENT
  Sex: Female

DRUGS (1)
  1. RINVOQ [Suspect]
     Active Substance: UPADACITINIB
     Indication: Polychondritis
     Route: 048
     Dates: start: 20210301

REACTIONS (3)
  - Multiple sclerosis [Unknown]
  - Off label use [Not Recovered/Not Resolved]
  - Eye disorder [Unknown]
